FAERS Safety Report 4816039-8 (Version None)
Quarter: 2005Q4

REPORT INFORMATION
  Report Type: 
  Country: None (occurrence: None)
  Receive Date: 20051026
  Receipt Date: 20051006
  Transmission Date: 20060501
  Serious: Yes (Hospitalization)
  Sender: FDA-Public Use
  Company Number: FR_050907123

PATIENT
  Age: 60 Year
  Sex: Female

DRUGS (3)
  1. FORTEO [Suspect]
     Indication: OSTEOPOROSIS
     Dosage: 20 UG DAY
     Dates: start: 20050401, end: 20050912
  2. CALCITONIN [Concomitant]
  3. TRAMADOL [Concomitant]

REACTIONS (11)
  - BACK PAIN [None]
  - DEPRESSED LEVEL OF CONSCIOUSNESS [None]
  - HYPERCALCAEMIA [None]
  - HYPOKALAEMIA [None]
  - LUNG INFECTION [None]
  - NAUSEA [None]
  - RENAL FAILURE [None]
  - SPINAL FRACTURE [None]
  - THIRST [None]
  - URINARY TRACT INFECTION [None]
  - VOMITING [None]
